FAERS Safety Report 18307487 (Version 1)
Quarter: 2020Q3

REPORT INFORMATION
  Report Type: Spontaneous
  Country: CN (occurrence: CN)
  Receive Date: 20200924
  Receipt Date: 20200924
  Transmission Date: 20201103
  Serious: Yes (Other)
  Sender: FDA-Public Use
  Company Number: CN-BAXTER-2020BAX019416

PATIENT
  Age: 9 Year
  Sex: Male

DRUGS (33)
  1. ENDOXAN [Suspect]
     Active Substance: CYCLOPHOSPHAMIDE
     Indication: ACUTE LYMPHOCYTIC LEUKAEMIA
     Dosage: FIRST TO SECOND TIME CHEMOTHERAPY, CYCLOPHOSPHAMIDE + 0.9% SODIUM CHLORIDE
     Route: 041
  2. 0.9% SODIUM CHLORIDE INJECTION [Suspect]
     Active Substance: SODIUM CHLORIDE
     Dosage: FIRST TO SECOND TIME CHEMOTHERAPY, DEXAMETHASONE SODIUM PHOSPHATE + CYTOSAR + 0.9% SODIUM CHLORIDE
     Route: 037
  3. 0.9% SODIUM CHLORIDE INJECTION [Suspect]
     Active Substance: SODIUM CHLORIDE
     Dosage: 3RD TIME THERAPY, DEXAMETHASONE SODIUM PHOSPHATE + METHOTREXATE 12.5 MG + 0.9% SODIUM CHLORIDE 3 ML
     Route: 037
     Dates: start: 20200801, end: 20200801
  4. DEXAMETHASONE SODIUM PHOSPHATE. [Suspect]
     Active Substance: DEXAMETHASONE SODIUM PHOSPHATE
     Dosage: FIRST TO SECOND TIME CHEMOTHERAPY, DEXAMETHASONE SODIUM PHOSPHATE + CYTOSAR + 0.9% SODIUM CHLORIDE
     Route: 037
  5. METHOTREXATE. [Suspect]
     Active Substance: METHOTREXATE
     Dosage: DOSE RE?INTRODUCED, DEXAMETHASONE SODIUM PHOSPHATE + METHOTREXATE + 0.9% SODIUM CHLORIDE
     Route: 037
  6. 5% GLUCOSE  INJECTION [Suspect]
     Active Substance: DEXTROSE
     Indication: MEDICATION DILUTION
     Dosage: FIRST TO SECOND TIME CHEMOTHERAPY, CYTOSAR + 5% GLUCOSE
     Route: 041
  7. DEXAMETHASONE SODIUM PHOSPHATE. [Suspect]
     Active Substance: DEXAMETHASONE SODIUM PHOSPHATE
     Dosage: THIRD TIME CHEMOTHERAPY, DEXAMETHASONE SODIUM PHOSPHATE + CYTOSAR + 0.9% SODIUM CHLORIDE 3 ML
     Route: 037
     Dates: start: 20200801, end: 20200801
  8. MERCAPTOPURINE. [Suspect]
     Active Substance: MERCAPTOPURINE
     Indication: ACUTE LYMPHOCYTIC LEUKAEMIA
     Dosage: DOSAGE FORM: TABLET, FIRST TO SECOND TIME CHEMOTHERAPY, ONCE EVERY NIGHT
     Route: 048
  9. 0.9% SODIUM CHLORIDE INJECTION [Suspect]
     Active Substance: SODIUM CHLORIDE
     Dosage: DOSE RE?INTRODUCED, DEXAMETHASONE SODIUM PHOSPHATE + METHOTREXATE + 0.9% SODIUM CHLORIDE
     Route: 037
  10. 0.9% SODIUM CHLORIDE INJECTION [Suspect]
     Active Substance: SODIUM CHLORIDE
     Dosage: DOSE RE?INTRODUCED, DEXAMETHASONE SODIUM PHOSPHATE + CYTOSAR + 0.9% SODIUM CHLORIDE
     Route: 037
  11. CYTOSAR [Suspect]
     Active Substance: CYTARABINE
     Dosage: FIRST TO SECOND TIME CHEMOTHERAPY, DEXAMETHASONE SODIUM PHOSPHATE + CYTOSAR + 0.9% SODIUM CHLORIDE
     Route: 037
  12. 0.9% SODIUM CHLORIDE INJECTION [Suspect]
     Active Substance: SODIUM CHLORIDE
     Indication: MEDICATION DILUTION
     Dosage: FIRST TO SECOND TIME CHEMOTHERAPY, CYCLOPHOSPHAMIDE + 0.9% SODIUM CHLORIDE
     Route: 041
  13. 0.9% SODIUM CHLORIDE INJECTION [Suspect]
     Active Substance: SODIUM CHLORIDE
     Dosage: 3RD TIME CHEMOTHERAPY, DEXAMETHASONE SODIUM PHOSPHATE + CYTOSAR 0.035 G + 0.9% SODIUM CHLORIDE 3 ML
     Route: 037
     Dates: start: 20200801, end: 20200801
  14. 5% GLUCOSE  INJECTION [Suspect]
     Active Substance: DEXTROSE
     Dosage: THIRD TIME CHEMOTHERAPY, CYTOSAR 0.05 G + 5% GLUCOSE 100 ML
     Route: 041
     Dates: start: 20200801, end: 20200808
  15. METHOTREXATE. [Suspect]
     Active Substance: METHOTREXATE
     Indication: ACUTE LYMPHOCYTIC LEUKAEMIA
     Dosage: FIRST TO 2ND TIME CHEMOTHERAPY, DEXAMETHASONE SODIUM PHOSPHATE + METHOTREXATE + 0.9% SODIUM CHLORIDE
     Route: 037
  16. METHOTREXATE. [Suspect]
     Active Substance: METHOTREXATE
     Dosage: THIRD TIME CHEMOTHERAPY, DEXAMETHASONE SODIUM PHOSPHATE + METHOTREXATE + 0.9% SODIUM CHLORIDE 3 ML
     Route: 037
     Dates: start: 20200801, end: 20200801
  17. 0.9% SODIUM CHLORIDE INJECTION [Suspect]
     Active Substance: SODIUM CHLORIDE
     Dosage: THIRD TIME CHEMOTHERAPY, CYCLOPHOSPHAMIDE 1 G + 0.9% SODIUM CHLORIDE INJECTION 500 ML
     Route: 041
     Dates: start: 20200801, end: 20200801
  18. DEXAMETHASONE SODIUM PHOSPHATE. [Suspect]
     Active Substance: DEXAMETHASONE SODIUM PHOSPHATE
     Dosage: DOSE RE?INTRODUCED, DEXAMETHASONE SODIUM PHOSPHATE + CYTOSAR + 0.9% SODIUM CHLORIDE
     Route: 037
  19. CYTOSAR [Suspect]
     Active Substance: CYTARABINE
     Dosage: THIRD TIME CHEMOTHERAPY, CYTOSAR 0.05 G + 5% GLUCOSE 100 ML
     Route: 041
     Dates: start: 20200801, end: 20200808
  20. CYTOSAR [Suspect]
     Active Substance: CYTARABINE
     Dosage: DOSE RE?INTRODUCED, DEXAMETHASONE SODIUM PHOSPHATE + CYTOSAR + 0.9% SODIUM CHLORIDE
     Route: 037
  21. 0.9% SODIUM CHLORIDE INJECTION [Suspect]
     Active Substance: SODIUM CHLORIDE
     Dosage: DOSE RE?INTRODUCED, CYCLOPHOSPHAMIDE + 0.9% SODIUM CHLORIDE
     Route: 041
  22. DEXAMETHASONE SODIUM PHOSPHATE. [Suspect]
     Active Substance: DEXAMETHASONE SODIUM PHOSPHATE
     Dosage: THIRD TIME CHEMOTHERAPY, DEXAMETHASONE SODIUM PHOSPHATE + METHOTREXATE + 0.9% SODIUM CHLORIDE 3 ML
     Route: 037
     Dates: start: 20200801, end: 20200801
  23. MERCAPTOPURINE. [Suspect]
     Active Substance: MERCAPTOPURINE
     Dosage: DOSAGE FORM: TABLET, THIRD TIME CHEMOTHERAPY, ONCE EVERY NIGHT
     Route: 048
     Dates: start: 20200801, end: 20200808
  24. CYTOSAR [Suspect]
     Active Substance: CYTARABINE
     Indication: ACUTE LYMPHOCYTIC LEUKAEMIA
     Dosage: FIRST TO SECOND TIME CHEMOTHERAPY, CYTOSAR + 5% GLUCOSE
     Route: 041
  25. ENDOXAN [Suspect]
     Active Substance: CYCLOPHOSPHAMIDE
     Dosage: THIRD TIME CHEMOTHERAPY, CYCLOPHOSPHAMIDE 1 G + 0.9% SODIUM CHLORIDE INJECTION 500 ML
     Route: 041
     Dates: start: 20200801, end: 20200801
  26. ENDOXAN [Suspect]
     Active Substance: CYCLOPHOSPHAMIDE
     Dosage: DOSE RE?INTRODUCED, CYCLOPHOSPHAMIDE + 0.9% SODIUM CHLORIDE
     Route: 041
  27. 0.9% SODIUM CHLORIDE INJECTION [Suspect]
     Active Substance: SODIUM CHLORIDE
     Dosage: FIRST TO 2ND TIME CHEMOTHERAPY, DEXAMETHASONE SODIUM PHOSPHATE + METHOTREXATE + 0.9% SODIUM CHLORIDE
     Route: 037
  28. 5% GLUCOSE  INJECTION [Suspect]
     Active Substance: DEXTROSE
     Dosage: DOSE RE?INTRODUCED, CYTOSAR + 5% GLUCOSE
     Route: 041
  29. DEXAMETHASONE SODIUM PHOSPHATE. [Suspect]
     Active Substance: DEXAMETHASONE SODIUM PHOSPHATE
     Indication: ACUTE LYMPHOCYTIC LEUKAEMIA
     Dosage: FIRST TO 2ND TIME CHEMOTHERAPY, DEXAMETHASONE SODIUM PHOSPHATE + METHOTREXATE + 0.9% SODIUM CHLORIDE
     Route: 037
  30. DEXAMETHASONE SODIUM PHOSPHATE. [Suspect]
     Active Substance: DEXAMETHASONE SODIUM PHOSPHATE
     Dosage: DOSE RE?INTRODUCED, DEXAMETHASONE SODIUM PHOSPHATE + METHOTREXATE + 0.9% SODIUM CHLORIDE
     Route: 037
  31. MERCAPTOPURINE. [Suspect]
     Active Substance: MERCAPTOPURINE
     Dosage: DOSAGE FORM: TABLET, DOSE RE?INTRODUCED, ONCE EVERY NIGHT
     Route: 048
  32. CYTOSAR [Suspect]
     Active Substance: CYTARABINE
     Dosage: THIRD TIME CHEMOTHERAPY, DEXAMETHASONE SODIUM PHOSPHATE 2.5 MG + CYTOSAR + 0.9% SODIUM CHLORIDE 3 ML
     Route: 037
     Dates: start: 20200801, end: 20200801
  33. CYTOSAR [Suspect]
     Active Substance: CYTARABINE
     Dosage: DOSE RE?INTRODUCED, CYTOSAR + 5% GLUCOSE
     Route: 041

REACTIONS (1)
  - Myelosuppression [Recovering/Resolving]

NARRATIVE: CASE EVENT DATE: 20200808
